FAERS Safety Report 8435196-8 (Version None)
Quarter: 2012Q2

REPORT INFORMATION
  Report Type: 
  Country: None (occurrence: None)
  Receive Date: 20120614
  Receipt Date: 20120604
  Transmission Date: 20120825
  Serious: Yes (Hospitalization, Other)
  Sender: FDA-Public Use
  Company Number: CA-JNJFOC-20120409431

PATIENT
  Sex: Male
  Weight: 73.8 kg

DRUGS (1)
  1. REMICADE [Suspect]
     Indication: COLITIS ULCERATIVE
     Route: 042
     Dates: start: 20091124

REACTIONS (6)
  - ABSCESS [None]
  - HAEMATOCHEZIA [None]
  - THERAPEUTIC RESPONSE DECREASED [None]
  - INCONTINENCE [None]
  - PSORIASIS [None]
  - FATIGUE [None]
